FAERS Safety Report 16313244 (Version 1)
Quarter: 2019Q2

REPORT INFORMATION
  Report Type: Spontaneous
  Country: US (occurrence: US)
  Receive Date: 20190515
  Receipt Date: 20190515
  Transmission Date: 20190711
  Serious: Yes (Other)
  Sender: FDA-Public Use
  Company Number: US-BAUSCH-BL-2019-013970

PATIENT
  Age: 24 Year
  Sex: Male
  Weight: 62.2 kg

DRUGS (3)
  1. APRISO [Suspect]
     Active Substance: MESALAMINE
     Route: 048
     Dates: start: 201904, end: 20190501
  2. PREDNISONE. [Suspect]
     Active Substance: PREDNISONE
     Indication: PRODUCT USED FOR UNKNOWN INDICATION
     Route: 048
     Dates: end: 201903
  3. APRISO [Suspect]
     Active Substance: MESALAMINE
     Indication: COLITIS ULCERATIVE
     Dosage: STARTED IN AUGUST OR SEPTEMBER 2018, EVERY MORNING
     Route: 048
     Dates: start: 2018

REACTIONS (5)
  - Testicular swelling [Unknown]
  - Colitis ulcerative [Not Recovered/Not Resolved]
  - Weight fluctuation [Unknown]
  - Prostate infection [Unknown]
  - Therapy cessation [Unknown]

NARRATIVE: CASE EVENT DATE: 2019
